FAERS Safety Report 16821105 (Version 1)
Quarter: 2019Q3

REPORT INFORMATION
  Report Type: Spontaneous
  Country: US (occurrence: US)
  Receive Date: 20190918
  Receipt Date: 20190918
  Transmission Date: 20191005
  Serious: No
  Sender: FDA-Public Use
  Company Number: US-ALIMERA SCIENCES INC.-US-FA-2017-003628

PATIENT
  Age: 66 Year
  Sex: Female

DRUGS (1)
  1. FLUOCINOLONE ACETONIDE. [Suspect]
     Active Substance: FLUOCINOLONE ACETONIDE
     Indication: PRODUCT USED FOR UNKNOWN INDICATION
     Dosage: 0.25 ?G, QD - UNKNOWN EYE
     Route: 031
     Dates: start: 20170609

REACTIONS (4)
  - Corneal oedema [Unknown]
  - Intraocular pressure increased [Unknown]
  - Device dislocation [Unknown]
  - Corneal disorder [Unknown]

NARRATIVE: CASE EVENT DATE: 20170711
